FAERS Safety Report 10553015 (Version 2)
Quarter: 2015Q2

REPORT INFORMATION
  Report Type: Spontaneous
  Country: GB (occurrence: GB)
  Receive Date: 20141029
  Receipt Date: 20150430
  Transmission Date: 20150821
  Serious: No
  Sender: FDA-Public Use
  Company Number: GB-009507513-1410GBR014257

PATIENT
  Sex: Female

DRUGS (1)
  1. SIMVASTATIN. [Suspect]
     Active Substance: SIMVASTATIN
     Dosage: UNK
     Route: 048
     Dates: start: 201002

REACTIONS (9)
  - Memory impairment [Recovered/Resolved]
  - Quality of life decreased [Recovered/Resolved]
  - Activities of daily living impaired [Recovered/Resolved]
  - Self esteem decreased [Recovered/Resolved]
  - Balance disorder [Recovered/Resolved]
  - Fatigue [Recovered/Resolved]
  - Feeling abnormal [Recovered/Resolved]
  - Social avoidant behaviour [Recovered/Resolved]
  - Myalgia [Recovered/Resolved]
